FAERS Safety Report 9328297 (Version 1)
Quarter: 2013Q2

REPORT INFORMATION
  Report Type: Spontaneous
  Country: US (occurrence: US)
  Receive Date: 20130604
  Receipt Date: 20130604
  Transmission Date: 20140414
  Serious: Yes (Other)
  Sender: FDA-Public Use
  Company Number: US-SANOFI-AVENTIS-2012SA047257

PATIENT
  Age: 76 Year
  Sex: Male
  Weight: 78.18 kg

DRUGS (5)
  1. LANTUS [Suspect]
     Indication: DIABETES MELLITUS
     Dosage: DOSE:20 UNIT(S)
     Route: 058
     Dates: start: 2009
  2. LANTUS [Suspect]
     Indication: DIABETES MELLITUS
     Dosage: DOSE:20 UNIT(S)
     Route: 058
     Dates: start: 2009
  3. LISINOPRIL [Concomitant]
     Indication: BLOOD PRESSURE
  4. METFORMIN [Concomitant]
     Indication: DIABETES MELLITUS
  5. LEVOTHYROXINE [Concomitant]
     Indication: DIABETES MELLITUS

REACTIONS (5)
  - Hypoglycaemia [Recovered/Resolved]
  - Asthenia [Recovered/Resolved]
  - Blood glucose increased [Recovering/Resolving]
  - Blood glucose decreased [Recovered/Resolved]
  - Injection site bruising [Recovering/Resolving]
